FAERS Safety Report 5062382-X (Version None)
Quarter: 2006Q3

REPORT INFORMATION
  Report Type: 
  Country: None (occurrence: None)
  Receive Date: 20060726
  Receipt Date: 20060719
  Transmission Date: 20061208
  Serious: Yes (Congenital Anomaly)
  Sender: FDA-Public Use
  Company Number: CH-GLAXOSMITHKLINE-B0431818A

PATIENT
  Sex: Male
  Weight: 3.2 kg

DRUGS (1)
  1. MALARONE [Suspect]
     Indication: PROPHYLACTIC CHEMOTHERAPY
     Dates: start: 20050707, end: 20050809

REACTIONS (4)
  - CAESAREAN SECTION [None]
  - DRUG EXPOSURE DURING PREGNANCY [None]
  - KIDNEY MALFORMATION [None]
  - URINARY TRACT MALFORMATION [None]
